FAERS Safety Report 10179885 (Version 1)
Quarter: 2014Q2

REPORT INFORMATION
  Report Type: Spontaneous
  Country: US (occurrence: US)
  Receive Date: 20140519
  Receipt Date: 20140519
  Transmission Date: 20141212
  Serious: Yes (Other)
  Sender: FDA-Public Use
  Company Number: US-PFIZER INC-2014136399

PATIENT
  Age: 59 Year
  Sex: Female
  Weight: 59.4 kg

DRUGS (7)
  1. CHANTIX [Suspect]
     Indication: SMOKING CESSATION THERAPY
     Dosage: 1 MG, 2X/DAY
     Dates: start: 20140220, end: 201403
  2. CLONAZEPAM [Concomitant]
     Indication: PANIC ATTACK
     Dosage: UNK
  3. LAMOTRIGINE [Concomitant]
     Dosage: 100 MG, DAILY
  4. NORTRIPTYLINE [Concomitant]
     Indication: DEPRESSION
     Dosage: 50 MG, DAILY
  5. ATENOLOL [Concomitant]
     Dosage: 50 MG, DAILY
  6. ATORVASTATIN [Concomitant]
     Dosage: 20 MG, DAILY
  7. AMLODIPINE [Concomitant]
     Dosage: 10 MG, DAILY

REACTIONS (2)
  - Uterine disorder [Unknown]
  - Agitation [Unknown]
